FAERS Safety Report 14313278 (Version 1)
Quarter: 2017Q4

REPORT INFORMATION
  Report Type: Spontaneous
  Country: GB (occurrence: GB)
  Receive Date: 20171221
  Receipt Date: 20171221
  Transmission Date: 20180321
  Serious: Yes (Life-Threatening, Hospitalization)
  Sender: FDA-Public Use
  Company Number: GB-TEVA-2017-GB-835293

PATIENT
  Age: 93 Year
  Sex: Female

DRUGS (2)
  1. TOLTERODINE [Suspect]
     Active Substance: TOLTERODINE
     Indication: HYPERTONIC BLADDER
     Dosage: 2 MILLIGRAM DAILY;
     Route: 048
     Dates: start: 201710, end: 20171108
  2. WARFARIN [Interacting]
     Active Substance: WARFARIN

REACTIONS (2)
  - Drug interaction [Recovered/Resolved]
  - International normalised ratio increased [Unknown]
